FAERS Safety Report 8296593-7 (Version None)
Quarter: 2012Q2

REPORT INFORMATION
  Report Type: 
  Country: None (occurrence: None)
  Receive Date: 20120418
  Receipt Date: 20120418
  Transmission Date: 20120825
  Serious: Yes (Other)
  Sender: FDA-Public Use
  Company Number: None

PATIENT
  Age: 72 Year
  Sex: Male
  Weight: 90.264 kg

DRUGS (2)
  1. ZOLEDRONIC ACID [Suspect]
     Indication: PROSTATE CANCER
     Dosage: 4MG
     Route: 041
     Dates: start: 20120207, end: 20120306
  2. ZOMETA [Concomitant]
     Route: 048

REACTIONS (1)
  - OSTEONECROSIS [None]
